FAERS Safety Report 8771548 (Version 1)
Quarter: 2012Q4

REPORT INFORMATION
  Report Type: 
  Country: US (occurrence: US)
  Receive Date: 20120905
  Receipt Date: 20120905
  Transmission Date: 20130627
  Serious: Yes (Other)
  Sender: FDA-Public Use
  Company Number: US-PFIZER INC-2012215252

PATIENT
  Age: 52 Year
  Sex: Female
  Weight: 68.03 kg

DRUGS (1)
  1. LYRICA [Suspect]
     Indication: NERVE BLOCK
     Dosage: 75 mg, 2x/day
     Route: 048
     Dates: end: 201208

REACTIONS (4)
  - Road traffic accident [Unknown]
  - Intervertebral disc disorder [Unknown]
  - Back injury [Unknown]
  - Neck injury [Unknown]
